FAERS Safety Report 9370426 (Version 2)
Quarter: 2013Q3

REPORT INFORMATION
  Report Type: Spontaneous
  Country: SE (occurrence: SE)
  Receive Date: 20130626
  Receipt Date: 20130703
  Transmission Date: 20140515
  Serious: Yes (Other)
  Sender: FDA-Public Use
  Company Number: SE-PFIZER INC-2013162035

PATIENT
  Age: 30 Year
  Sex: Female

DRUGS (1)
  1. PROVERA [Suspect]
     Indication: AMENORRHOEA
     Dosage: 10 MG, 1X/DAY
     Dates: start: 20130517, end: 20130526

REACTIONS (2)
  - Ectopic pregnancy [Unknown]
  - Abortion spontaneous [Unknown]
